FAERS Safety Report 6170817-4 (Version None)
Quarter: 2009Q2

REPORT INFORMATION
  Report Type: 
  Country: None (occurrence: None)
  Receive Date: 20090427
  Receipt Date: 20090421
  Transmission Date: 20091009
  Serious: Yes (Death, Hospitalization)
  Sender: FDA-Public Use
  Company Number: 192285USA

PATIENT
  Sex: Female

DRUGS (7)
  1. TREXALL [Suspect]
     Dosage: 15 MG (1 IN 1 D),ORAL
     Route: 048
     Dates: start: 20000331, end: 20060606
  2. ETANERCEPT [Suspect]
     Indication: RHEUMATOID ARTHRITIS
     Dosage: 25 MG (2 IN 1 WK),SUBCUTANEOUS
     Route: 058
     Dates: start: 20030305, end: 20060606
  3. KETOPROFEN [Concomitant]
  4. PREDNISONE [Concomitant]
  5. DIGOXIN [Concomitant]
  6. FOSINOPRIL SODIUM [Concomitant]
  7. METOPROLOL SUCCINATE [Concomitant]

REACTIONS (1)
  - EXTRADURAL ABSCESS [None]
